FAERS Safety Report 9846461 (Version 1)
Quarter: 2014Q1

REPORT INFORMATION
  Report Type: Spontaneous
  Country: US (occurrence: None)
  Receive Date: 20140123
  Receipt Date: 20140123
  Transmission Date: 20141002
  Serious: Yes (Life-Threatening, Disabling)
  Sender: FDA-Public Use
  Company Number: None

PATIENT
  Age: 37 Year
  Sex: Female
  Weight: 58.97 kg

DRUGS (1)
  1. COPPER T. 380 A [Suspect]

REACTIONS (8)
  - Haemorrhage [None]
  - Hypertension [None]
  - Cerebrovascular accident [None]
  - Dizziness [None]
  - Abdominal pain upper [None]
  - Alopecia [None]
  - Hypersensitivity [None]
  - Vaginal cyst [None]
